FAERS Safety Report 8291039-7 (Version None)
Quarter: 2012Q2

REPORT INFORMATION
  Report Type: 
  Country: None (occurrence: None)
  Receive Date: 20120417
  Receipt Date: 20111115
  Transmission Date: 20120825
  Serious: No
  Sender: FDA-Public Use
  Company Number: US-ASTRAZENECA-2011SE69117

PATIENT
  Age: 70 Year
  Sex: Female
  Weight: 75.3 kg

DRUGS (5)
  1. VALTURNA [Concomitant]
     Indication: BLOOD PRESSURE ABNORMAL
  2. NEXIUM [Suspect]
     Indication: GASTROOESOPHAGEAL REFLUX DISEASE
     Route: 048
  3. NEXIUM [Suspect]
     Route: 048
  4. TEKTURNA HCT [Concomitant]
     Indication: BLOOD PRESSURE ABNORMAL
  5. DOXAZOSIN MESYLATE [Concomitant]
     Indication: BLOOD PRESSURE ABNORMAL

REACTIONS (5)
  - HAIR TEXTURE ABNORMAL [None]
  - HYPERHIDROSIS [None]
  - DRY SKIN [None]
  - HOT FLUSH [None]
  - WEIGHT DECREASED [None]
